FAERS Safety Report 8424886-9 (Version None)
Quarter: 2012Q2

REPORT INFORMATION
  Report Type: 
  Country: None (occurrence: None)
  Receive Date: 20120611
  Receipt Date: 20120606
  Transmission Date: 20120825
  Serious: Yes (Other)
  Sender: FDA-Public Use
  Company Number: US-AMGEN-USASP2012035424

PATIENT
  Age: 45 Year
  Sex: Female

DRUGS (40)
  1. DEXTROSE [Concomitant]
     Dosage: 12.5 G, UNK
     Route: 042
  2. DIPHENHYDRAMINE HCL [Concomitant]
     Dosage: 12.5 MG, UNK
     Route: 042
  3. HYDROMORPHONE HCL [Concomitant]
     Dosage: 0.5 MG, UNK
     Route: 042
  4. POTASSIUM PHOSPHATES [Concomitant]
     Dosage: 30 MMOL, QD
     Route: 042
  5. DOCUSATE SODIUM [Concomitant]
     Dosage: 2 DF, BID
     Route: 048
  6. ACETAMINOPHEN [Concomitant]
     Dosage: 650 MG, Q8H
     Route: 048
  7. LORAZEPAM [Concomitant]
     Dosage: UNK UNK, Q8H
     Route: 048
  8. POTASSIUM CHLORIDE [Concomitant]
     Dosage: 40 MEQ, QD
     Route: 042
  9. ROSUVASTATIN [Concomitant]
     Dosage: 5 MG, UNK
     Route: 048
  10. AZTREONAM [Concomitant]
     Dosage: 2000 MG, Q8H
     Route: 042
  11. MAGNESIUM HYDROXIDE TAB [Concomitant]
     Dosage: 10 ML, Q8H
  12. MAGNESIUM SULFATE [Concomitant]
     Dosage: 2 UNK, QD
  13. VALACYCLOVIR HYDROCHLORIDE [Concomitant]
     Dosage: 500 MG, UNK
     Route: 048
  14. SODIUM CHLORIDE [Concomitant]
     Dosage: 10 ML, Q4H
  15. METHOTREXATE [Suspect]
     Indication: NON-HODGKIN'S LYMPHOMA
  16. CYTARABINE [Suspect]
     Indication: NON-HODGKIN'S LYMPHOMA
  17. FLUCONAZOLE [Concomitant]
     Dosage: 200 MG, UNK
     Route: 048
  18. INSULIN LISPRO [Concomitant]
     Dosage: UNK UNK, TID
     Route: 058
  19. INSULIN REGULAR HM [Concomitant]
     Dosage: 80 IU, UNK
  20. PROMETHAZINE [Concomitant]
     Dosage: 12.5 MG, Q6H
     Route: 042
  21. SODIUM CHLORIDE [Concomitant]
     Dosage: 500 ML, UNK
     Route: 042
  22. HYDROMORPHONE HCL [Concomitant]
     Dosage: 1 MG, Q4H
     Route: 042
  23. HYDROMORPHONE HCL [Concomitant]
     Dosage: 8 MG, Q4H
     Route: 048
  24. HYDROXYZINE HCL [Concomitant]
     Dosage: 50 MG, Q6H
     Route: 048
  25. LISINOPRIL [Concomitant]
     Dosage: 5 MG, UNK
     Route: 048
  26. DOCUSATE SODIUM [Concomitant]
     Dosage: 1 DF, BID
  27. SODIUM PHOSPHATE                   /00492801/ [Concomitant]
     Dosage: 30 MMOL, QD
     Route: 042
  28. PANCRELIPASE [Concomitant]
     Dosage: 3 UNK, UNK
  29. CIPROFLOXACIN [Concomitant]
     Dosage: 200 ML, Q8H
     Route: 042
  30. NYSTATIN [Concomitant]
     Dosage: 1 DF, TID
     Route: 061
  31. PEGFILGRASTIM [Suspect]
     Indication: NON-HODGKIN'S LYMPHOMA
  32. RITUXIMAB [Suspect]
     Indication: NON-HODGKIN'S LYMPHOMA
  33. HYDROCORTISONE [Concomitant]
     Dosage: 1 DF, TID
     Route: 054
  34. HYDROMORPHONE HCL [Concomitant]
     Dosage: 4 UNK, UNK
  35. INSULIN REGULAR HM [Concomitant]
     Dosage: 65 IU, UNK
     Route: 058
  36. LEVOTHYROXINE SODIUM [Concomitant]
     Dosage: 100 MUG, UNK
     Route: 048
  37. MAGNESIUM SULFATE [Concomitant]
     Dosage: 4 G, QD
     Route: 042
  38. ONDANSETRON [Concomitant]
     Dosage: 8 MG, Q8H
     Route: 042
  39. SODIUM CHLORIDE [Concomitant]
     Dosage: 10 ML, UNK
  40. SODIUM CHLORIDE [Concomitant]
     Dosage: 10 ML, Q8H

REACTIONS (1)
  - FEBRILE NEUTROPENIA [None]
